FAERS Safety Report 7673789-6 (Version None)
Quarter: 2011Q3

REPORT INFORMATION
  Report Type: 
  Country: None (occurrence: None)
  Receive Date: 20110810
  Receipt Date: 20110804
  Transmission Date: 20111222
  Serious: Yes (Hospitalization, Other)
  Sender: FDA-Public Use
  Company Number: US-ABBOTT-11P-163-0844459-00

PATIENT
  Sex: Female
  Weight: 57.204 kg

DRUGS (16)
  1. BUSPAR [Concomitant]
     Indication: ANXIETY
  2. BENAZEPRIL HYDROCHLORIDE [Concomitant]
     Indication: PRODUCT USED FOR UNKNOWN INDICATION
  3. TRAZODONE HCL [Concomitant]
     Indication: HEADACHE
  4. HUMIRA [Suspect]
     Indication: PSORIATIC ARTHROPATHY
     Dates: start: 20030101
  5. TRAMADOL HCL [Concomitant]
     Indication: PAIN
  6. PREDNISONE [Concomitant]
     Indication: PSORIATIC ARTHROPATHY
  7. ABILIFY [Concomitant]
     Indication: DEPRESSION
  8. ALDROMET [Concomitant]
     Indication: HYPERTENSION
  9. GABAPENTIN [Concomitant]
     Indication: PAIN
  10. EFFEXOR [Concomitant]
     Indication: DEPRESSION
  11. EPLERENONE [Concomitant]
     Indication: DIURETIC THERAPY
  12. PREMARIN [Concomitant]
     Indication: HORMONE REPLACEMENT THERAPY
  13. CELEBREX [Concomitant]
     Indication: PAIN
  14. OMEPRAZOLE [Concomitant]
     Indication: ULCER
  15. EPLERENONE [Concomitant]
     Indication: CARDIAC DISORDER
  16. FIORICET [Concomitant]
     Indication: MIGRAINE

REACTIONS (7)
  - CEREBROVASCULAR ACCIDENT [None]
  - MALAISE [None]
  - TENDON RUPTURE [None]
  - TEMPOROMANDIBULAR JOINT SYNDROME [None]
  - MYOCARDIAL INFARCTION [None]
  - FALL [None]
  - FOOT FRACTURE [None]
